FAERS Safety Report 6492004-2 (Version None)
Quarter: 2009Q4

REPORT INFORMATION
  Report Type: 
  Country: None (occurrence: None)
  Receive Date: 20091208
  Receipt Date: 20091126
  Transmission Date: 20100525
  Serious: Yes (Other)
  Sender: FDA-Public Use
  Company Number: 2009AP004834

PATIENT
  Age: 76 Year
  Sex: Female

DRUGS (1)
  1. OMEPRAZOLE [Suspect]
     Dosage: PO
     Route: 048
     Dates: start: 20081001, end: 20090115

REACTIONS (1)
  - TUBULOINTERSTITIAL NEPHRITIS [None]
